FAERS Safety Report 7607714-0 (Version None)
Quarter: 2011Q3

REPORT INFORMATION
  Report Type: 
  Country: None (occurrence: None)
  Receive Date: 20110713
  Receipt Date: 20110527
  Transmission Date: 20111222
  Serious: Yes (Other)
  Sender: FDA-Public Use
  Company Number: PHHY2011FR47941

PATIENT
  Age: 64 Year
  Sex: Female

DRUGS (4)
  1. LEVOTHYROXINE SODIUM [Concomitant]
  2. VALSARTAN [Suspect]
     Dosage: 60 MG, UNK
  3. VALSARTAN  AND HYDROCHLOROTHIAZIDE [Suspect]
     Dates: start: 20110501, end: 20110523
  4. VALSARTAN [Suspect]
     Dates: start: 20110523

REACTIONS (3)
  - DYSPHAGIA [None]
  - RESPIRATORY DISTRESS [None]
  - PHARYNGEAL OEDEMA [None]
